FAERS Safety Report 5657821-7 (Version None)
Quarter: 2008Q1

REPORT INFORMATION
  Report Type: 
  Country: None (occurrence: None)
  Receive Date: 20080310
  Receipt Date: 20071031
  Transmission Date: 20080703
  Serious: No
  Sender: FDA-Public Use
  Company Number: US-ASTRAZENECA-2007UW25270

PATIENT
  Age: 48 Year
  Sex: Female
  Weight: 145.1 kg

DRUGS (3)
  1. LISINOPRIL [Suspect]
     Indication: HYPERTENSION
     Route: 048
     Dates: start: 20070501
  2. TRAMADOL HCL [Concomitant]
  3. DEPAKATON [Concomitant]

REACTIONS (2)
  - MUSCLE INJURY [None]
  - MUSCLE SPASMS [None]
